FAERS Safety Report 9015270 (Version 1)
Quarter: 2013Q1

REPORT INFORMATION
  Report Type: Spontaneous
  Country: US (occurrence: None)
  Receive Date: 20130104
  Receipt Date: 20130104
  Transmission Date: 20140127
  Serious: Yes (Other)
  Sender: FDA-Public Use
  Company Number: 2012SUN00390

PATIENT
  Sex: Female

DRUGS (2)
  1. CARBOPLATIN [Suspect]
     Indication: PAPILLARY SEROUS ENDOMETRIAL CARCINOMA
     Route: 042
  2. PACLITAXEL [Suspect]
     Dosage: ONCE EVERY 3 WEEKS

REACTIONS (1)
  - Pelvic abscess [None]
